FAERS Safety Report 23702893 (Version 1)
Quarter: 2024Q2

REPORT INFORMATION
  Report Type: Report from Study
  Country: US (occurrence: US)
  Receive Date: 20240403
  Receipt Date: 20240403
  Transmission Date: 20240715
  Serious: Yes (Hospitalization, Other)
  Sender: FDA-Public Use
  Company Number: US-002147023-NVSC2024US065531

PATIENT
  Sex: Female

DRUGS (2)
  1. ENTRESTO [Suspect]
     Active Substance: SACUBITRIL\VALSARTAN
     Indication: Cardiac failure
     Dosage: UNK
     Route: 065
     Dates: start: 202108
  2. METOPROLOL [Suspect]
     Active Substance: METOPROLOL
     Indication: Cardiac failure
     Dosage: UNK
     Route: 065
     Dates: start: 202108

REACTIONS (8)
  - Loss of consciousness [Unknown]
  - Blood pressure systolic decreased [Unknown]
  - Amnesia [Unknown]
  - Fatigue [Unknown]
  - Heart rate increased [Unknown]
  - Incorrect dose administered [Unknown]
  - Contraindicated product administered [Unknown]
  - Product dose omission issue [Unknown]
